FAERS Safety Report 21692694 (Version 1)
Quarter: 2022Q4

REPORT INFORMATION
  Report Type: Spontaneous
  Country: GB (occurrence: GB)
  Receive Date: 20221207
  Receipt Date: 20221207
  Transmission Date: 20230113
  Serious: No
  Sender: FDA-Public Use
  Company Number: None

PATIENT
  Age: 34 Year
  Sex: Female

DRUGS (7)
  1. TOLVAPTAN [Suspect]
     Active Substance: TOLVAPTAN
     Indication: Congenital cystic kidney disease
     Dosage: 30 MILLIGRAM(TABLET, UNCOATED)
     Route: 048
  2. TOLVAPTAN [Suspect]
     Active Substance: TOLVAPTAN
     Dosage: 15 MILLIGRAM, (TABLET, UNCOATED)
     Route: 048
  3. TOLVAPTAN [Suspect]
     Active Substance: TOLVAPTAN
     Dosage: 90 MILLIGRAM, (TABLET, UNCOATED)
     Route: 048
  4. TOLVAPTAN [Suspect]
     Active Substance: TOLVAPTAN
     Dosage: 30 MILLIGRAM(TABLET, UNCOATED)
     Route: 048
  5. TOLVAPTAN [Suspect]
     Active Substance: TOLVAPTAN
     Dosage: 45 MILLIGRAM,( TABLET, UNCOATED)
     Route: 048
  6. TOLVAPTAN [Suspect]
     Active Substance: TOLVAPTAN
     Dosage: 60 MILLIGRAM, (TABLET, UNCOATED)
     Route: 048
  7. LITHIUM [Concomitant]
     Active Substance: LITHIUM
     Indication: Bipolar disorder
     Dosage: 700 MILLIGRAM, QD
     Route: 048
     Dates: start: 2005

REACTIONS (2)
  - Nocturia [Not Recovered/Not Resolved]
  - Dizziness [Not Recovered/Not Resolved]

NARRATIVE: CASE EVENT DATE: 20180201
